FAERS Safety Report 7659804-4 (Version None)
Quarter: 2011Q3

REPORT INFORMATION
  Report Type: 
  Country: None (occurrence: None)
  Receive Date: 20110805
  Receipt Date: 20110801
  Transmission Date: 20111222
  Serious: Yes (Death, Hospitalization)
  Sender: FDA-Public Use
  Company Number: PHHY2011JP70131

PATIENT
  Age: 68 Year
  Sex: Male

DRUGS (3)
  1. ALLOPURINOL [Concomitant]
     Indication: HYPERURICAEMIA
     Dosage: UNK UKN, UNK
  2. FUROSEMIDE [Concomitant]
     Indication: HYPERURICAEMIA
     Dosage: UNK UKN, UNK
  3. PREDNISOLONE [Suspect]
     Dosage: 60 MG/DAY
     Route: 048

REACTIONS (10)
  - ACUTE RESPIRATORY DISTRESS SYNDROME [None]
  - HAEMOPTYSIS [None]
  - PULMONARY HAEMORRHAGE [None]
  - RESPIRATORY FAILURE [None]
  - DEPRESSED LEVEL OF CONSCIOUSNESS [None]
  - STRONGYLOIDIASIS [None]
  - INTERSTITIAL LUNG DISEASE [None]
  - DEATH [None]
  - CYTOMEGALOVIRUS INFECTION [None]
  - PYREXIA [None]
